FAERS Safety Report 10154229 (Version 1)
Quarter: 2014Q2

REPORT INFORMATION
  Report Type: Spontaneous
  Country: US (occurrence: US)
  Receive Date: 20140506
  Receipt Date: 20140506
  Transmission Date: 20141212
  Serious: No
  Sender: FDA-Public Use
  Company Number: US-PFIZER INC-2014121071

PATIENT
  Age: 46 Year
  Sex: Female

DRUGS (6)
  1. LYRICA [Suspect]
     Indication: MIGRAINE
     Dosage: 300 MG, 2X/DAY
     Route: 048
  2. LYRICA [Suspect]
     Dosage: 300 MG, 1X/DAY
     Route: 048
  3. SYNTHROID [Concomitant]
     Dosage: UNK
  4. ZETIA [Concomitant]
     Indication: BLOOD CHOLESTEROL INCREASED
  5. SINGULAIR [Concomitant]
     Dosage: UNK
  6. FIORICET [Concomitant]
     Indication: HEADACHE
     Dosage: UNK

REACTIONS (1)
  - Fluid retention [Unknown]
